FAERS Safety Report 7739341-9 (Version None)
Quarter: 2011Q3

REPORT INFORMATION
  Report Type: 
  Country: None (occurrence: None)
  Receive Date: 20110909
  Receipt Date: 20110831
  Transmission Date: 20111222
  Serious: Yes (Hospitalization)
  Sender: FDA-Public Use
  Company Number: BR-US-EMD SERONO, INC.-7080689

PATIENT
  Sex: Male

DRUGS (2)
  1. REBIF [Suspect]
     Indication: RELAPSING-REMITTING MULTIPLE SCLEROSIS
     Dates: start: 20101213
  2. CORTICOSTEROIDS [Suspect]
     Indication: MULTIPLE SCLEROSIS

REACTIONS (2)
  - MYALGIA [None]
  - OSTEONECROSIS [None]
